FAERS Safety Report 18530065 (Version 1)
Quarter: 2020Q4

REPORT INFORMATION
  Report Type: Report from Study
  Country: US (occurrence: US)
  Receive Date: 20201121
  Receipt Date: 20201121
  Transmission Date: 20210114
  Serious: No
  Sender: FDA-Public Use
  Company Number: NVSC2020US304650

PATIENT
  Sex: Female

DRUGS (1)
  1. GILENYA [Suspect]
     Active Substance: FINGOLIMOD HYDROCHLORIDE
     Indication: MULTIPLE SCLEROSIS
     Dosage: 0.5 MG, QD
     Route: 048
     Dates: start: 20201016

REACTIONS (11)
  - Musculoskeletal stiffness [Not Recovered/Not Resolved]
  - Fatigue [Not Recovered/Not Resolved]
  - Constipation [Not Recovered/Not Resolved]
  - Cognitive disorder [Not Recovered/Not Resolved]
  - Feeling abnormal [Not Recovered/Not Resolved]
  - Micturition disorder [Not Recovered/Not Resolved]
  - Pain [Not Recovered/Not Resolved]
  - Visual impairment [Not Recovered/Not Resolved]
  - Bladder disorder [Not Recovered/Not Resolved]
  - Functional gastrointestinal disorder [Not Recovered/Not Resolved]
  - Sexual dysfunction [Not Recovered/Not Resolved]

NARRATIVE: CASE EVENT DATE: 2020
